FAERS Safety Report 10090245 (Version 1)
Quarter: 2014Q2

REPORT INFORMATION
  Report Type: Spontaneous
  Country: US (occurrence: None)
  Receive Date: 20140411
  Receipt Date: 20140411
  Transmission Date: 20141212
  Serious: No
  Sender: FDA-Public Use
  Company Number: 2014US002980

PATIENT
  Age: 67 Year
  Sex: Male

DRUGS (1)
  1. ICLUSIG [Suspect]
     Indication: LYMPHOCYTIC LEUKAEMIA
     Route: 048

REACTIONS (1)
  - Influenza [None]
